FAERS Safety Report 10064424 (Version 3)
Quarter: 2014Q2

REPORT INFORMATION
  Report Type: Spontaneous
  Country: JP (occurrence: JP)
  Receive Date: 20140408
  Receipt Date: 20140528
  Transmission Date: 20141212
  Serious: Yes (Other)
  Sender: FDA-Public Use
  Company Number: JP-TEVA-473750USA

PATIENT
  Age: 53 Year
  Sex: Male

DRUGS (6)
  1. BENDAMUSTINE [Suspect]
     Indication: B-CELL LYMPHOMA
     Dosage: 6 CYCLES, 2/ 21 DAY; CYCLIC
     Route: 042
     Dates: start: 20120328, end: 20120329
  2. BENDAMUSTINE [Suspect]
     Route: 042
     Dates: start: 20120418, end: 20120419
  3. BENDAMUSTINE [Suspect]
     Route: 042
     Dates: start: 20120509, end: 20120510
  4. BENDAMUSTINE [Suspect]
     Route: 042
     Dates: start: 20120530, end: 20120531
  5. BENDAMUSTINE [Suspect]
     Route: 042
     Dates: start: 20120625, end: 20120626
  6. BENDAMUSTINE [Suspect]
     Route: 042
     Dates: start: 20120626, end: 20120627

REACTIONS (1)
  - Cytomegalovirus viraemia [Recovering/Resolving]
